FAERS Safety Report 20035037 (Version 3)
Quarter: 2022Q1

REPORT INFORMATION
  Report Type: Spontaneous
  Country: BR (occurrence: BR)
  Receive Date: 20211104
  Receipt Date: 20220203
  Transmission Date: 20220423
  Serious: Yes (Other)
  Sender: FDA-Public Use
  Company Number: BR-AMERICAN REGENT INC-2021002850

PATIENT
  Sex: Female

DRUGS (3)
  1. VENOFER [Suspect]
     Active Substance: IRON SUCROSE
     Indication: Malabsorption
     Dosage: UNK
     Route: 042
  2. IRON POLYMALTOSE [Suspect]
     Active Substance: IRON POLYMALTOSE
     Indication: Malabsorption
     Dosage: UNK
     Route: 065
  3. IRON POLYMALTOSE [Suspect]
     Active Substance: IRON POLYMALTOSE
     Indication: Malabsorption
     Dosage: UNK
     Route: 030
     Dates: start: 2000

REACTIONS (5)
  - Ill-defined disorder [Recovered/Resolved]
  - Breast cancer recurrent [Recovered/Resolved]
  - Unevaluable event [Recovered/Resolved]
  - Malabsorption [Recovered/Resolved]
  - Product availability issue [Unknown]
